FAERS Safety Report 25828097 (Version 2)
Quarter: 2025Q3

REPORT INFORMATION
  Report Type: Other
  Country: US (occurrence: US)
  Receive Date: 20250921
  Receipt Date: 20250930
  Transmission Date: 20251021
  Serious: No
  Sender: TRAVERE THERAPEUTICS
  Company Number: US-TRAVERE-2025TVT01437

PATIENT
  Age: 56 Year
  Sex: Male

DRUGS (1)
  1. FILSPARI [Suspect]
     Active Substance: SPARSENTAN
     Indication: IgA nephropathy
     Route: 048
     Dates: start: 202506, end: 202508

REACTIONS (1)
  - Liver function test increased [Unknown]
